FAERS Safety Report 19686756 (Version 2)
Quarter: 2021Q3

REPORT INFORMATION
  Report Type: Spontaneous
  Country: US (occurrence: US)
  Receive Date: 20210811
  Receipt Date: 20210903
  Transmission Date: 20211014
  Serious: Yes (Other)
  Sender: FDA-Public Use
  Company Number: US-009507513-2108USA002638

PATIENT
  Age: 61 Year
  Sex: Female
  Weight: 45.9 kg

DRUGS (10)
  1. ELIQUIS [Concomitant]
     Active Substance: APIXABAN
  2. SIMETHICONE (DIMETHICONE) [Concomitant]
     Active Substance: DIMETHICONE
  3. FOLIC ACID. [Concomitant]
     Active Substance: FOLIC ACID
  4. LENVATINIB MESYLATE [Suspect]
     Active Substance: LENVATINIB MESYLATE
     Indication: ENDOMETRIAL CANCER
     Dosage: 10 MILLIGRAMS DAILY
     Route: 048
     Dates: start: 202103
  5. KLONOPIN [Concomitant]
     Active Substance: CLONAZEPAM
  6. KEYTRUDA [Suspect]
     Active Substance: PEMBROLIZUMAB
     Indication: ENDOMETRIAL CANCER
     Dosage: 200 MILLIGRAMS EVERY 3 WEEKS
     Route: 042
     Dates: start: 20210325
  7. LEXAPRO [Concomitant]
     Active Substance: ESCITALOPRAM OXALATE
  8. PROTONIX [OMEPRAZOLE] [Concomitant]
     Active Substance: OMEPRAZOLE
  9. MARINOL [Concomitant]
     Active Substance: DRONABINOL
  10. MORPHINE [Concomitant]
     Active Substance: MORPHINE

REACTIONS (2)
  - Dysphagia [Not Recovered/Not Resolved]
  - Weight decreased [Not Recovered/Not Resolved]

NARRATIVE: CASE EVENT DATE: 2021
